FAERS Safety Report 5546886-9 (Version None)
Quarter: 2007Q4

REPORT INFORMATION
  Report Type: 
  Country: None (occurrence: None)
  Receive Date: 20071206
  Receipt Date: 20070917
  Transmission Date: 20080405
  Serious: Yes (Other)
  Sender: FDA-Public Use
  Company Number: 2007S1009362

PATIENT
  Age: 56 Year
  Sex: Male

DRUGS (4)
  1. AZATHIOPRINE [Suspect]
     Indication: UVEITIS
     Dosage: 50 MG;ORAL;3 TIMES A DAY
     Route: 048
     Dates: start: 20070724, end: 20070904
  2. FOSAMAX [Concomitant]
  3. PREDNISONE [Concomitant]
  4. RANITIDINE [Concomitant]

REACTIONS (3)
  - CONFUSIONAL STATE [None]
  - MENTAL STATUS CHANGES [None]
  - PSYCHOTIC DISORDER [None]
